FAERS Safety Report 24967322 (Version 2)
Quarter: 2025Q1

REPORT INFORMATION
  Report Type: Report from Study
  Country: TW (occurrence: TW)
  Receive Date: 20250213
  Receipt Date: 20250219
  Transmission Date: 20250409
  Serious: Yes (Hospitalization, Other)
  Sender: ABBVIE
  Company Number: TW-ABBVIE-6123535

PATIENT
  Age: 78 Year
  Sex: Female
  Weight: 64 kg

DRUGS (12)
  1. RINVOQ [Suspect]
     Active Substance: UPADACITINIB
     Indication: Rheumatoid arthritis
     Route: 048
     Dates: start: 20230321
  2. COUGH NOS [Concomitant]
     Active Substance: UNSPECIFIED INGREDIENT
     Indication: Cough
     Dates: start: 20250110
  3. GLIPIZIDE [Concomitant]
     Active Substance: GLIPIZIDE
     Indication: Diabetes mellitus
     Dosage: 5MG/TAB?FREQUENCY TEXT: QDAC
     Dates: start: 20230911
  4. TRACETON [Concomitant]
     Indication: Analgesic therapy
     Dosage: 37.5/325MG/TAB?FREQUENCY TEXT: QD
     Route: 048
     Dates: start: 20240318
  5. MECO B12 [Concomitant]
     Indication: Diabetic neuropathy
     Route: 048
     Dates: start: 20231204
  6. PRAVASTATIN [Concomitant]
     Active Substance: PRAVASTATIN
     Indication: Hyperlipidaemia
     Dosage: 40MG/TAB?FREQUENCY TEXT: QD
     Route: 048
     Dates: start: 20170630
  7. BISOPROLOL FUMARATE [Concomitant]
     Active Substance: BISOPROLOL FUMARATE
     Indication: Diabetic neuropathy
     Dosage: FREQUENCY TEXT: QDPC
     Route: 048
     Dates: start: 20250204
  8. NORVASC [Concomitant]
     Active Substance: AMLODIPINE BESYLATE
     Indication: Hypertension
     Dosage: 5MG/TAB?FREQUENCY TEXT: QD
     Route: 048
     Dates: start: 20210305
  9. MICARDIS [Concomitant]
     Active Substance: TELMISARTAN
     Indication: Hypertension
     Dosage: 80MG/TAB?FREQUENCY TEXT: QDPC
     Route: 048
     Dates: start: 20240226
  10. METFORMIN [Concomitant]
     Active Substance: METFORMIN HYDROCHLORIDE
     Indication: Diabetes mellitus
     Route: 048
     Dates: start: 20230911
  11. FAMOTIDINE [Concomitant]
     Active Substance: FAMOTIDINE
     Indication: Antacid therapy
     Dosage: 20MG/TAB?FREQUENCY TEXT: QD
     Route: 048
     Dates: start: 20240318
  12. BEFON [Concomitant]
     Indication: Muscle relaxant therapy
     Route: 048
     Dates: start: 20231204

REACTIONS (20)
  - Cerebrovascular accident [Unknown]
  - Intervertebral disc protrusion [Unknown]
  - Hemiparesis [Unknown]
  - Urinary tract infection [Unknown]
  - Muscular weakness [Unknown]
  - Lacunar stroke [Unknown]
  - Cerebral atrophy [Unknown]
  - Empty sella syndrome [Unknown]
  - Cerebral infarction [Unknown]
  - Cerebral ventricle dilatation [Unknown]
  - White matter lesion [Unknown]
  - Thalamic infarction [Unknown]
  - Basal ganglia infarction [Unknown]
  - Brain stem microhaemorrhage [Unknown]
  - Cerebral microhaemorrhage [Unknown]
  - Carotid arteriosclerosis [Unknown]
  - Cerebral arteriosclerosis [Unknown]
  - Femur fracture [Unknown]
  - Lumbar spinal stenosis [Unknown]
  - Arterial flow velocity decreased [Unknown]

NARRATIVE: CASE EVENT DATE: 20240314
